FAERS Safety Report 8021231-8 (Version None)
Quarter: 2011Q4

REPORT INFORMATION
  Report Type: 
  Country: None (occurrence: None)
  Receive Date: 20111229
  Receipt Date: 20111209
  Transmission Date: 20120403
  Serious: Yes (Death)
  Sender: FDA-Public Use
  Company Number: 2011PROUSA00852

PATIENT
  Age: 70 Year
  Sex: Male

DRUGS (1)
  1. PROVENGE [Suspect]
     Indication: PROSTATE CANCER METASTATIC
     Dosage: 250 ML, SINGLE, INTRAVENOUS
     Route: 042
     Dates: start: 20101025, end: 20101025

REACTIONS (3)
  - HYPOAESTHESIA [None]
  - MUSCULAR WEAKNESS [None]
  - SPINAL CORD COMPRESSION [None]
